FAERS Safety Report 7693805-5 (Version None)
Quarter: 2011Q3

REPORT INFORMATION
  Report Type: 
  Country: None (occurrence: None)
  Receive Date: 20110819
  Receipt Date: 20110608
  Transmission Date: 20111222
  Serious: No
  Sender: FDA-Public Use
  Company Number: US-ALLERGAN-1106624US

PATIENT
  Age: 36 Year
  Sex: Female
  Weight: 58.957 kg

DRUGS (1)
  1. LASTACAFT [Suspect]
     Indication: HYPERSENSITIVITY
     Dosage: 1 GTT, QD
     Dates: start: 20110427, end: 20110512

REACTIONS (7)
  - EYE SWELLING [None]
  - OCULAR HYPERAEMIA [None]
  - ABNORMAL SENSATION IN EYE [None]
  - EYE INFLAMMATION [None]
  - CONTACT LENS INTOLERANCE [None]
  - EYE PRURITUS [None]
  - EYE PAIN [None]
